FAERS Safety Report 11439878 (Version 1)
Quarter: 2015Q3

REPORT INFORMATION
  Report Type: Spontaneous
  Country: FR (occurrence: FR)
  Receive Date: 20150901
  Receipt Date: 20150901
  Transmission Date: 20151125
  Serious: Yes (Hospitalization, Other)
  Sender: FDA-Public Use
  Company Number: FR-ACCORD-033386

PATIENT
  Age: 67 Year
  Sex: Female

DRUGS (13)
  1. IPRATROPIUM [Concomitant]
     Active Substance: IPRATROPIUM
  2. TAHOR [Concomitant]
     Active Substance: ATORVASTATIN CALCIUM
  3. INNOHEP [Concomitant]
     Active Substance: TINZAPARIN SODIUM
     Dates: end: 20150521
  4. METHYLPREDNISOLONE. [Concomitant]
     Active Substance: METHYLPREDNISOLONE
  5. ATROPINE. [Concomitant]
     Active Substance: ATROPINE
  6. GLUCOPHAGE [Concomitant]
     Active Substance: METFORMIN HYDROCHLORIDE
  7. ONDANSETRON [Concomitant]
     Active Substance: ONDANSETRON
  8. FOLINIC ACID [Concomitant]
     Active Substance: LEUCOVORIN
  9. IRINOTECAN MYLAN [Suspect]
     Active Substance: IRINOTECAN
     Indication: CHOLANGIOCARCINOMA
     Route: 042
     Dates: start: 20150512, end: 20150512
  10. TERBUTALINE [Concomitant]
     Active Substance: TERBUTALINE
  11. XELODA [Suspect]
     Active Substance: CAPECITABINE
     Indication: CHOLANGIOCARCINOMA
     Route: 048
     Dates: start: 20141223, end: 20150527
  12. FLUOROURACIL ACCORD [Suspect]
     Active Substance: FLUOROURACIL
     Indication: CHOLANGIOCARCINOMA
     Route: 042
     Dates: start: 20150512, end: 20150512
  13. PROPRANOLOL [Concomitant]
     Active Substance: PROPRANOLOL\PROPRANOLOL HYDROCHLORIDE

REACTIONS (8)
  - Vertigo [Unknown]
  - Disseminated intravascular coagulation [Unknown]
  - Thrombotic microangiopathy [Unknown]
  - Thrombocytopenia [Not Recovered/Not Resolved]
  - Pulmonary embolism [Unknown]
  - Fall [Unknown]
  - Hypertension [Unknown]
  - Cerebral infarction [Unknown]

NARRATIVE: CASE EVENT DATE: 20150429
